FAERS Safety Report 18509057 (Version 1)
Quarter: 2020Q4

REPORT INFORMATION
  Report Type: Spontaneous
  Country: US (occurrence: US)
  Receive Date: 20201117
  Receipt Date: 20201117
  Transmission Date: 20210114
  Serious: Yes (Other)
  Sender: FDA-Public Use
  Company Number: US-AUROBINDO-AUR-APL-2010-01443

PATIENT
  Age: 34 Year
  Sex: Male

DRUGS (3)
  1. CLINDAMYCIN. [Suspect]
     Active Substance: CLINDAMYCIN
     Indication: SWELLING
     Dosage: 300 MILLIGRAM, FOUR TIMES/DAY
     Route: 065
  2. COTRIMOXAZOLE [Concomitant]
     Active Substance: SULFAMETHOXAZOLE\TRIMETHOPRIM
     Indication: PRODUCT USED FOR UNKNOWN INDICATION
     Dosage: TWO TIMES A DAY,160/800 MG
     Route: 065
  3. CLINDAMYCIN. [Suspect]
     Active Substance: CLINDAMYCIN
     Indication: PAIN

REACTIONS (6)
  - Skin lesion [Recovered/Resolved]
  - Pustule [Recovered/Resolved]
  - Papule [Recovered/Resolved]
  - Neutrophilic dermatosis [Recovered/Resolved]
  - Acne [Recovered/Resolved]
  - Acute febrile neutrophilic dermatosis [Recovered/Resolved]
